FAERS Safety Report 8559202-5 (Version None)
Quarter: 2012Q3

REPORT INFORMATION
  Report Type: 
  Country: None (occurrence: None)
  Receive Date: 20120720
  Receipt Date: 20120710
  Transmission Date: 20120928
  Serious: Yes (Other)
  Sender: FDA-Public Use
  Company Number: 2012SA037789

PATIENT
  Age: 34 Year
  Sex: Female
  Weight: 113.4 kg

DRUGS (1)
  1. MENTHOL / UNKNOWN / UNKNOWN [Suspect]
     Indication: BACK PAIN
     Dosage: ONCE;TOPICAL
     Route: 061
     Dates: start: 20120510, end: 20120510

REACTIONS (2)
  - BURNING SENSATION [None]
  - SCAR [None]
